FAERS Safety Report 7422678-0 (Version None)
Quarter: 2011Q2

REPORT INFORMATION
  Report Type: 
  Country: None (occurrence: None)
  Receive Date: 20110419
  Receipt Date: 20110408
  Transmission Date: 20111010
  Serious: Yes (Hospitalization)
  Sender: FDA-Public Use
  Company Number: IT-ELI_LILLY_AND_COMPANY-IT201104002223

PATIENT
  Sex: Female

DRUGS (4)
  1. SIVASTIN [Concomitant]
  2. ZYPREXA [Suspect]
     Indication: DEPRESSION
     Dosage: 5 MG, DAILY (1/D)
     Route: 048
     Dates: start: 20110210, end: 20110321
  3. DAPAROX [Concomitant]
     Indication: DEPRESSION
     Dosage: 40 MG, QD
     Route: 048
     Dates: start: 20110215, end: 20110321
  4. XANAX [Concomitant]
     Indication: DEPRESSION
     Dosage: 1 DF, QD
     Route: 048
     Dates: start: 20110210, end: 20110304

REACTIONS (5)
  - OFF LABEL USE [None]
  - HEAD INJURY [None]
  - FACE INJURY [None]
  - FALL [None]
  - TREMOR [None]
